FAERS Safety Report 7876008-0 (Version None)
Quarter: 2011Q4

REPORT INFORMATION
  Report Type: 
  Country: None (occurrence: None)
  Receive Date: 20111031
  Receipt Date: 20100420
  Transmission Date: 20120403
  Serious: No
  Sender: FDA-Public Use
  Company Number: US-BAYER-201020719NA

PATIENT
  Age: 80 Year
  Sex: Female

DRUGS (9)
  1. TOPROL-XL [Concomitant]
  2. CLONIDINE [Concomitant]
  3. AMLODIPINE [Concomitant]
  4. HYDROCHLOROTHIAZIDE [Concomitant]
  5. ZOLPIDEM [Concomitant]
  6. POTASSIUM CHLORIDE [Concomitant]
  7. LISINOPRIL [Concomitant]
  8. AVELOX [Suspect]
     Indication: PRODUCT USED FOR UNKNOWN INDICATION
     Dosage: UNK
     Route: 048
     Dates: start: 20100420
  9. AVELOX [Suspect]
     Dosage: UNK
     Route: 042
     Dates: start: 20100419

REACTIONS (1)
  - HEART RATE INCREASED [None]
